FAERS Safety Report 9316677 (Version 2)
Quarter: 2013Q3

REPORT INFORMATION
  Report Type: Report from Study
  Country: ES (occurrence: ES)
  Receive Date: 20130530
  Receipt Date: 20130820
  Transmission Date: 20140515
  Serious: Yes (Death)
  Sender: FDA-Public Use
  Company Number: ES-ROCHE-1229979

PATIENT
  Sex: Male

DRUGS (8)
  1. PEG-INTERFERON ALFA 2A [Suspect]
     Indication: HEPATITIS C
     Route: 058
     Dates: start: 20130128, end: 20130414
  2. RIBAVIRIN [Suspect]
     Indication: HEPATITIS C
     Route: 048
     Dates: start: 20130128, end: 20130414
  3. TELAPREVIR [Suspect]
     Indication: HEPATITIS C
     Route: 048
     Dates: start: 20130128, end: 20130414
  4. INSULIN [Concomitant]
     Indication: DIABETES MELLITUS
     Route: 058
  5. CARVEDILOL [Concomitant]
     Indication: HYPERTENSION
     Route: 048
  6. ENALAPRIL [Concomitant]
     Indication: HYPERTENSION
     Route: 048
  7. SPIRONOLACTONE [Concomitant]
     Indication: FLUID RETENTION
     Route: 048
  8. NORFLOXACIN [Concomitant]
     Indication: PROPHYLAXIS
     Route: 048

REACTIONS (1)
  - Multi-organ failure [Fatal]
